FAERS Safety Report 6222507-7 (Version None)
Quarter: 2009Q2

REPORT INFORMATION
  Report Type: 
  Country: None (occurrence: None)
  Receive Date: 20090608
  Receipt Date: 20090416
  Transmission Date: 20091009
  Serious: Yes (Hospitalization)
  Sender: FDA-Public Use
  Company Number: CA-GENENTECH-281572

PATIENT
  Sex: Female

DRUGS (4)
  1. BEVACIZUMAB [Suspect]
     Indication: BREAST CANCER
     Dosage: 1120 MG, Q3W
     Route: 042
     Dates: start: 20090327
  2. CYCLOPHOSPHAMIDE [Suspect]
     Indication: BREAST CANCER
     Dosage: 900 MG, Q3W
     Route: 042
     Dates: start: 20090327
  3. EPIRUBICIN [Suspect]
     Indication: BREAST CANCER
     Dosage: 180 MG, Q3W
     Route: 042
     Dates: start: 20090327
  4. FLUOROURACIL [Suspect]
     Indication: BREAST CANCER
     Dosage: 900 MG, Q3W
     Route: 042
     Dates: start: 20090327

REACTIONS (1)
  - PYREXIA [None]
